FAERS Safety Report 6156107-4 (Version None)
Quarter: 2009Q2

REPORT INFORMATION
  Report Type: 
  Country: None (occurrence: None)
  Receive Date: 20090413
  Receipt Date: 20090413
  Transmission Date: 20091009
  Serious: Yes (Life-Threatening, Disabling)
  Sender: FDA-Public Use
  Company Number: None

PATIENT
  Age: 55 Year
  Sex: Female
  Weight: 68.0396 kg

DRUGS (1)
  1. ABILIFY [Suspect]
     Indication: BIPOLAR DISORDER
     Dosage: 20 MG ONCE PER DAY PO
     Route: 048
     Dates: start: 20020129, end: 20080705

REACTIONS (2)
  - DYSTONIA [None]
  - MUSCULOSKELETAL STIFFNESS [None]
